FAERS Safety Report 9405738 (Version 2)
Quarter: 2013Q3

REPORT INFORMATION
  Report Type: Spontaneous
  Country: US (occurrence: US)
  Receive Date: 20130717
  Receipt Date: 20130819
  Transmission Date: 20140515
  Serious: Yes (Life-Threatening, Hospitalization, Other)
  Sender: FDA-Public Use
  Company Number: US-B.I. PHARMACEUTICALS,INC./RIDGEFIELD-2013-BI-20150BP

PATIENT
  Age: 61 Year
  Sex: Male
  Weight: 162 kg

DRUGS (4)
  1. PRADAXA [Suspect]
     Indication: ATRIAL FIBRILLATION
     Dosage: 300 MG
     Route: 048
     Dates: start: 20110208, end: 20130626
  2. ATENOLOL [Concomitant]
     Indication: ATRIAL FIBRILLATION
     Dates: start: 2000
  3. LISINOPRIL [Concomitant]
     Indication: HYPERTENSION
  4. ZOCOR [Concomitant]
     Indication: HYPERLIPIDAEMIA

REACTIONS (2)
  - Acute myocardial infarction [Recovered/Resolved]
  - Coronary artery occlusion [Recovered/Resolved]
